FAERS Safety Report 7756631-4 (Version None)
Quarter: 2011Q3

REPORT INFORMATION
  Report Type: 
  Country: None (occurrence: None)
  Receive Date: 20110916
  Receipt Date: 20110913
  Transmission Date: 20111222
  Serious: Yes (Death)
  Sender: FDA-Public Use
  Company Number: PHHY2011US52489

PATIENT
  Sex: Female

DRUGS (2)
  1. DILANTIN [Concomitant]
  2. AFINITOR [Suspect]
     Indication: CARCINOID TUMOUR
     Dosage: 10 MG, QD
     Route: 048
     Dates: start: 20100420

REACTIONS (2)
  - DEATH [None]
  - LIVER FUNCTION TEST ABNORMAL [None]
